FAERS Safety Report 15022682 (Version 1)
Quarter: 2018Q2

REPORT INFORMATION
  Report Type: Spontaneous
  Country: US (occurrence: US)
  Receive Date: 20180618
  Receipt Date: 20180618
  Transmission Date: 20180711
  Serious: Yes (Other)
  Sender: FDA-Public Use
  Company Number: US-PFIZER INC-2018241352

PATIENT
  Sex: Female

DRUGS (1)
  1. MENEST [Suspect]
     Active Substance: ESTROGENS, ESTERIFIED

REACTIONS (4)
  - Intentional product misuse [Unknown]
  - Feeling abnormal [Unknown]
  - Exophthalmos [Unknown]
  - Burning sensation [Unknown]
